FAERS Safety Report 8090558-6 (Version None)
Quarter: 2012Q1

REPORT INFORMATION
  Report Type: 
  Country: None (occurrence: None)
  Receive Date: 20120129
  Receipt Date: 20111227
  Transmission Date: 20120608
  Serious: No
  Sender: FDA-Public Use
  Company Number: US-ABBOTT-11P-163-0873781-00

PATIENT
  Sex: Female

DRUGS (15)
  1. HUMIRA [Suspect]
     Indication: RHEUMATOID ARTHRITIS
  2. CANASA [Concomitant]
     Indication: COLITIS ULCERATIVE
  3. AMBIEN [Concomitant]
     Indication: PRODUCT USED FOR UNKNOWN INDICATION
  4. PROVENTIL [Concomitant]
     Indication: PRODUCT USED FOR UNKNOWN INDICATION
  5. PULMICORT [Concomitant]
     Indication: PRODUCT USED FOR UNKNOWN INDICATION
  6. DULERA ORAL INHALATION [Concomitant]
     Indication: ASTHMA
  7. BENICAR HCT [Concomitant]
     Indication: HYPERTENSION
     Dosage: 20/2.5 MG DAILY; 1 IN 1 DAYS
  8. PRILOSEC [Concomitant]
     Indication: PRODUCT USED FOR UNKNOWN INDICATION
  9. SINGULAIR [Concomitant]
     Indication: PRODUCT USED FOR UNKNOWN INDICATION
  10. MAGNESIUM HYDROXIDE TAB [Concomitant]
     Indication: PRODUCT USED FOR UNKNOWN INDICATION
  11. REMIRON [Concomitant]
     Indication: PRODUCT USED FOR UNKNOWN INDICATION
  12. SYNTHROID [Concomitant]
     Indication: PRODUCT USED FOR UNKNOWN INDICATION
  13. REGLAN [Concomitant]
     Indication: PRODUCT USED FOR UNKNOWN INDICATION
  14. XANAX [Concomitant]
     Indication: PRODUCT USED FOR UNKNOWN INDICATION
  15. HUMIRA [Suspect]
     Indication: ANKYLOSING SPONDYLITIS
     Dates: start: 20110921

REACTIONS (5)
  - ASTHMA [None]
  - FATIGUE [None]
  - DYSPNOEA [None]
  - WHEEZING [None]
  - SINUSITIS [None]
